FAERS Safety Report 4337321-7 (Version None)
Quarter: 2004Q1

REPORT INFORMATION
  Report Type: 
  Country: None (occurrence: None)
  Receive Date: 20040329
  Receipt Date: 20040114
  Transmission Date: 20041129
  Serious: No
  Sender: FDA-Public Use
  Company Number: USA040156575

PATIENT
  Age: 12 Year
  Sex: Male
  Weight: 27 kg

DRUGS (1)
  1. STRATTERA [Suspect]
     Dosage: 60 MG/DAY
     Dates: start: 20030401, end: 20031101

REACTIONS (3)
  - ABDOMINAL PAIN UPPER [None]
  - DISTURBANCE IN ATTENTION [None]
  - PRESCRIBED OVERDOSE [None]
